FAERS Safety Report 5632319-0 (Version None)
Quarter: 2008Q1

REPORT INFORMATION
  Report Type: 
  Country: None (occurrence: None)
  Receive Date: 20080220
  Receipt Date: 20080214
  Transmission Date: 20080703
  Serious: Yes (Hospitalization)
  Sender: FDA-Public Use
  Company Number: US-BAXTER-2008BH001085

PATIENT
  Sex: Male
  Weight: 68 kg

DRUGS (1)
  1. DIANEAL [Suspect]
     Indication: PERITONEAL DIALYSIS
     Dosage: DOSE UNIT:UNKNOWN
     Route: 033
     Dates: start: 20080128, end: 20080205

REACTIONS (5)
  - CHILLS [None]
  - INGUINAL HERNIA [None]
  - PERITONITIS [None]
  - PYREXIA [None]
  - TREMOR [None]
